FAERS Safety Report 5360758-4 (Version None)
Quarter: 2007Q2

REPORT INFORMATION
  Report Type: 
  Country: None (occurrence: None)
  Receive Date: 20070530
  Receipt Date: 20070129
  Transmission Date: 20071010
  Serious: No
  Sender: FDA-Public Use
  Company Number: 2007PV029701

PATIENT
  Age: 60 Year
  Sex: Male

DRUGS (5)
  1. BYETTA [Suspect]
     Indication: DIABETES MELLITUS
     Dosage: 10 MCG; BID; SC
     Route: 058
     Dates: start: 20070221
  2. BYETTA [Suspect]
     Dosage: 5 MCG; SC
     Route: 058
     Dates: start: 20070126, end: 20070220
  3. GLITAZONES [Concomitant]
  4. INSULIN [Concomitant]
  5. ROSIGLITAZONE [Concomitant]

REACTIONS (4)
  - BLOOD GLUCOSE INCREASED [None]
  - DIZZINESS [None]
  - NAUSEA [None]
  - WEIGHT DECREASED [None]
